FAERS Safety Report 8987430 (Version 2)
Quarter: 2013Q1

REPORT INFORMATION
  Report Type: Report from Study
  Country: DE (occurrence: DE)
  Receive Date: 20121227
  Receipt Date: 20130208
  Transmission Date: 20140127
  Serious: Yes (Hospitalization, Other)
  Sender: FDA-Public Use
  Company Number: DE-ABBOTT-12P-062-1027128-00

PATIENT
  Age: 47 Year
  Sex: Female

DRUGS (3)
  1. HUMIRA [Suspect]
     Indication: PRODUCT USED FOR UNKNOWN INDICATION
     Route: 058
     Dates: start: 201110, end: 201202
  2. MTX [Suspect]
     Indication: PRODUCT USED FOR UNKNOWN INDICATION
     Route: 048
     Dates: start: 200807, end: 20120918
  3. PREDNISOLON [Concomitant]
     Indication: PRODUCT USED FOR UNKNOWN INDICATION
     Dosage: 5 MG DAILY
     Dates: end: 2012

REACTIONS (9)
  - Renal failure [Unknown]
  - Pyrexia [Recovering/Resolving]
  - Leukopenia [Unknown]
  - Normochromic normocytic anaemia [Unknown]
  - Hypercalcaemia [Unknown]
  - Fatigue [Unknown]
  - Oral discomfort [Unknown]
  - Dysphagia [Unknown]
  - Hypotension [Unknown]
